FAERS Safety Report 20736605 (Version 3)
Quarter: 2022Q2

REPORT INFORMATION
  Report Type: Spontaneous
  Country: US (occurrence: US)
  Receive Date: 20220421
  Receipt Date: 20220531
  Transmission Date: 20220721
  Serious: No
  Sender: FDA-Public Use
  Company Number: US-PFIZER INC-202200597741

PATIENT
  Age: 84 Year
  Sex: Female

DRUGS (1)
  1. INLYTA [Suspect]
     Active Substance: AXITINIB
     Dosage: UNK
     Dates: start: 20220414

REACTIONS (2)
  - Diarrhoea [Unknown]
  - Faeces soft [Unknown]

NARRATIVE: CASE EVENT DATE: 20220401
